FAERS Safety Report 6543071-9 (Version None)
Quarter: 2010Q1

REPORT INFORMATION
  Report Type: 
  Country: None (occurrence: None)
  Receive Date: 20100120
  Receipt Date: 20100107
  Transmission Date: 20100710
  Serious: Yes (Other)
  Sender: FDA-Public Use
  Company Number: PHHY2010FR01049

PATIENT
  Age: 57 Year
  Sex: Female

DRUGS (3)
  1. LEPONEX [Suspect]
     Indication: MENTAL DISORDER
     Dosage: 250 MG, QD
     Dates: start: 20090915, end: 20091201
  2. IMOVANE [Concomitant]
     Dosage: UNK
     Dates: end: 20091201
  3. RIVOTRIL [Concomitant]
     Dosage: UNK

REACTIONS (2)
  - CONFUSIONAL STATE [None]
  - SPEECH DISORDER [None]
